FAERS Safety Report 9411519 (Version 2)
Quarter: 2013Q3

REPORT INFORMATION
  Report Type: Report from Study
  Country: US (occurrence: US)
  Receive Date: 20130722
  Receipt Date: 20130730
  Transmission Date: 20140515
  Serious: Yes (Other)
  Sender: FDA-Public Use
  Company Number: US-ASTELLAS-2013US007544

PATIENT
  Age: 15 Year
  Sex: Female
  Weight: 52 kg

DRUGS (6)
  1. TACROLIMUS OINTMENT [Suspect]
     Indication: DERMATITIS ATOPIC
     Dosage: 0.1 %, BID
     Route: 061
     Dates: start: 20020117
  2. FLOVENT [Suspect]
     Indication: ASTHMA
     Dosage: 1 PUFF, BID
     Route: 055
  3. ATARAX /00058401/ [Suspect]
     Indication: DERMATITIS ATOPIC
     Dosage: UNK
     Route: 048
  4. DAILY MULTIVITAMIN [Suspect]
     Indication: ROUTINE HEALTH MAINTENANCE
     Dosage: QD
     Route: 048
  5. DESONIDE [Suspect]
     Indication: DERMATITIS ATOPIC
     Dosage: PRN
     Route: 061
     Dates: start: 2006
  6. FAMVIR /01226201/ [Suspect]
     Indication: HERPES SIMPLEX
     Dosage: 125 MG, BID X 7 DAYS PRN
     Dates: start: 2004

REACTIONS (2)
  - Off label use [Unknown]
  - Oedema peripheral [Not Recovered/Not Resolved]
